FAERS Safety Report 26075358 (Version 1)
Quarter: 2025Q4

REPORT INFORMATION
  Report Type: Spontaneous
  Country: US (occurrence: None)
  Receive Date: 20251121
  Receipt Date: 20251121
  Transmission Date: 20260117
  Serious: Yes (unspecified)
  Sender: FDA-CTU
  Company Number: None

PATIENT
  Age: 74 Year
  Sex: Male
  Weight: 114.3 kg

DRUGS (10)
  1. REPATHA [Suspect]
     Active Substance: EVOLOCUMAB
     Indication: Cardiac disorder
     Dosage: OTHER QUANTITY : 1 INJECTION(S);?OTHER FREQUENCY : EVERY 2 WEEKS;?
     Route: 030
     Dates: start: 20250711, end: 20251024
  2. REPATHA [Suspect]
     Active Substance: EVOLOCUMAB
     Indication: Hypercholesterolaemia
  3. WARFARIN [Concomitant]
     Active Substance: WARFARIN
  4. LISINOPRIL [Concomitant]
     Active Substance: LISINOPRIL
  5. BISOPROLOL [Concomitant]
     Active Substance: BISOPROLOL
  6. METFORMIN [Concomitant]
     Active Substance: METFORMIN HYDROCHLORIDE
  7. AMLODIPINE [Concomitant]
     Active Substance: AMLODIPINE BESYLATE
  8. SIMVASTATIN [Concomitant]
     Active Substance: SIMVASTATIN
  9. VITAMINS [Concomitant]
     Active Substance: VITAMINS
  10. PROBIOTICS NOS [Concomitant]
     Active Substance: PROBIOTICS NOS

REACTIONS (12)
  - Nasopharyngitis [None]
  - Sinus disorder [None]
  - Cough [None]
  - Rhinorrhoea [None]
  - Constipation [None]
  - Injection related reaction [None]
  - Fatigue [None]
  - Gait inability [None]
  - Appendicitis [None]
  - Atrial fibrillation [None]
  - Myalgia [None]
  - Muscular weakness [None]

NARRATIVE: CASE EVENT DATE: 20250905
